FAERS Safety Report 4312824-X (Version None)
Quarter: 2004Q1

REPORT INFORMATION
  Report Type: 
  Country: None (occurrence: None)
  Receive Date: 20040304
  Receipt Date: 20040216
  Transmission Date: 20041129
  Serious: Yes (Hospitalization)
  Sender: FDA-Public Use
  Company Number: J200400587

PATIENT
  Age: 77 Year
  Sex: Male

DRUGS (1)
  1. MYSLER - (ZOLPIDEM) - TABLET - 10MG [Suspect]
     Indication: INSOMNIA
     Dosage: 10MG
     Route: 048
     Dates: start: 20040131, end: 20040131

REACTIONS (3)
  - CEREBELLAR INFARCTION [None]
  - DEPRESSED LEVEL OF CONSCIOUSNESS [None]
  - LACUNAR INFARCTION [None]
